FAERS Safety Report 9605701 (Version 3)
Quarter: 2013Q4

REPORT INFORMATION
  Report Type: Spontaneous
  Country: MY (occurrence: MY)
  Receive Date: 20131008
  Receipt Date: 20131218
  Transmission Date: 20140711
  Serious: Yes (Death, Hospitalization)
  Sender: FDA-Public Use
  Company Number: MY-CELGENEUS-101-21880-13093987

PATIENT
  Age: 51 Year
  Sex: Male

DRUGS (5)
  1. REVLIMID [Suspect]
     Indication: PLASMA CELL MYELOMA
     Dosage: 25 MILLIGRAM
     Route: 048
     Dates: start: 20130611, end: 20130821
  2. OXYCONTIN [Concomitant]
     Indication: ANALGESIC THERAPY
     Dosage: 20 MILLIGRAM
     Route: 048
     Dates: start: 20130506
  3. PARACETAMOL [Concomitant]
     Indication: ANALGESIC THERAPY
     Dosage: 4 GRAM
     Route: 048
     Dates: start: 20130506
  4. BACTRIM [Concomitant]
     Indication: ANTIBIOTIC PROPHYLAXIS
     Dosage: 4 TABLET
     Route: 048
  5. CELEBREX [Concomitant]
     Indication: ANALGESIC THERAPY
     Dosage: 1 TABLET
     Route: 048
     Dates: start: 20130812

REACTIONS (3)
  - Plasma cell myeloma recurrent [Fatal]
  - Femur fracture [Not Recovered/Not Resolved]
  - Therapeutic response decreased [Not Recovered/Not Resolved]
